FAERS Safety Report 9900335 (Version 2)
Quarter: 2014Q1

REPORT INFORMATION
  Report Type: Spontaneous
  Country: TR (occurrence: TR)
  Receive Date: 20140216
  Receipt Date: 20140216
  Transmission Date: 20141002
  Serious: Yes (Other)
  Sender: FDA-Public Use
  Company Number: TR-JHP PHARMACEUTICALS, LLC-JHP201400024

PATIENT
  Sex: 0

DRUGS (4)
  1. COLY-MYCIN M PARENTERAL [Suspect]
     Indication: BACTERIAL INFECTION
     Dosage: DIVIDED DOSE EVERY 8 HOURS
     Route: 042
  2. COLY-MYCIN M PARENTERAL [Suspect]
     Dosage: DOSAGE LOWERED EVERY 36 HOURS
     Route: 042
  3. CIPROFLOXACIN [Suspect]
  4. MEROPENEM [Suspect]

REACTIONS (3)
  - Nephropathy toxic [Unknown]
  - Cardiac failure [Unknown]
  - Multi-organ failure [Unknown]
